FAERS Safety Report 9902840 (Version 1)
Quarter: 2014Q1

REPORT INFORMATION
  Report Type: Spontaneous
  Country: US (occurrence: US)
  Receive Date: 20140217
  Receipt Date: 20140217
  Transmission Date: 20141002
  Serious: Yes (Death)
  Sender: FDA-Public Use
  Company Number: PHHY2014US014697

PATIENT
  Age: 65 Year
  Sex: Female

DRUGS (3)
  1. METHOTREXATE [Suspect]
     Indication: BREAST CANCER
     Dosage: 40 MG/M2, DAYS 1 AND 8
     Route: 042
  2. 5-FLUOROURACIL [Suspect]
     Indication: BREAST CANCER
     Dosage: 600 MG/M2, DAYS 1 AND 8
     Route: 042
  3. CYCLOPHOSPHAMIDE [Suspect]
     Indication: BREAST CANCER
     Dosage: 100 MG/M2, UNK
     Route: 048

REACTIONS (7)
  - Acute myeloid leukaemia [Fatal]
  - Thrombocytopenia [Fatal]
  - Neutropenia [Fatal]
  - Hypochromic anaemia [Fatal]
  - Bone marrow failure [Fatal]
  - Spur cell anaemia [Fatal]
  - Dyspnoea [Unknown]
